FAERS Safety Report 10981181 (Version 2)
Quarter: 2015Q2

REPORT INFORMATION
  Report Type: Spontaneous
  Country: US (occurrence: US)
  Receive Date: 20150402
  Receipt Date: 20150525
  Transmission Date: 20150821
  Serious: No
  Sender: FDA-Public Use
  Company Number: US-JNJFOC-20140706273

PATIENT
  Age: 71 Year
  Sex: Female
  Weight: 72.12 kg

DRUGS (2)
  1. IMODIUM MULTI-SYMPTOM RELIEF [Suspect]
     Active Substance: DIMETHICONE\LOPERAMIDE HYDROCHLORIDE
     Route: 048
  2. IMODIUM MULTI-SYMPTOM RELIEF [Suspect]
     Active Substance: DIMETHICONE\LOPERAMIDE HYDROCHLORIDE
     Indication: DIARRHOEA
     Dosage: DOSE-1/2 -2 CAPLETS??INTERVAL-1 OR2 X DAILY/ MAX OF 2 CAPLETS 24 HOUR
     Route: 048

REACTIONS (1)
  - Inappropriate schedule of drug administration [Unknown]
